FAERS Safety Report 5203160-8 (Version None)
Quarter: 2006Q4

REPORT INFORMATION
  Report Type: 
  Country: None (occurrence: None)
  Receive Date: 20061016
  Receipt Date: 20060411
  Transmission Date: 20070319
  Serious: Yes (Other)
  Sender: FDA-Public Use
  Company Number: 2006029789

PATIENT
  Sex: Female
  Weight: 99.7913 kg

DRUGS (1)
  1. NEURONTIN [Suspect]
     Indication: RADICULOPATHY
     Dosage: (300 MG)
     Dates: start: 20050101, end: 20050101

REACTIONS (2)
  - DYSPNOEA [None]
  - FACE OEDEMA [None]
